FAERS Safety Report 16882274 (Version 1)
Quarter: 2019Q4

REPORT INFORMATION
  Report Type: Spontaneous
  Country: US (occurrence: US)
  Receive Date: 20191003
  Receipt Date: 20191003
  Transmission Date: 20200122
  Serious: No
  Sender: FDA-Public Use
  Company Number: US-ASCEND THERAPEUTICS US, LLC-2075270

PATIENT
  Age: 46 Year
  Sex: Female

DRUGS (3)
  1. UTROGESTAN [Suspect]
     Active Substance: PROGESTERONE
  2. ESTROGEL [Suspect]
     Active Substance: ESTRADIOL
     Indication: HORMONE REPLACEMENT THERAPY
     Dates: end: 2019
  3. FEMOSTON 1/10 (ESTRADIOL, DYDROGESTERONE) [Concomitant]

REACTIONS (4)
  - Menopausal symptoms [Unknown]
  - Alopecia [Unknown]
  - Alopecia [Recovering/Resolving]
  - Menstruation irregular [Unknown]

NARRATIVE: CASE EVENT DATE: 2019
